FAERS Safety Report 10686858 (Version 2)
Quarter: 2021Q3

REPORT INFORMATION
  Report Type: Spontaneous
  Country: US (occurrence: US)
  Receive Date: 20150102
  Receipt Date: 20210814
  Transmission Date: 20211014
  Serious: Yes (Hospitalization)
  Sender: FDA-Public Use
  Company Number: US-AUROBINDO-AUR-APL-2014-13359

PATIENT
  Age: 16 Year
  Sex: Male

DRUGS (1)
  1. AMLODIPINE BESYLATE TABLETS 10 MG [Suspect]
     Active Substance: AMLODIPINE BESYLATE
     Indication: PRODUCT USED FOR UNKNOWN INDICATION
     Dosage: 30 DF, UNK
     Route: 065

REACTIONS (7)
  - Arrhythmia [Recovered/Resolved]
  - Drug level increased [Recovered/Resolved]
  - Abdominal pain [Unknown]
  - Nausea [Unknown]
  - Distributive shock [Unknown]
  - Hypotension [Recovering/Resolving]
  - Intentional overdose [Unknown]
